FAERS Safety Report 16134754 (Version 10)
Quarter: 2020Q2

REPORT INFORMATION
  Report Type: Report from Study
  Country: BE (occurrence: BE)
  Receive Date: 20190329
  Receipt Date: 20200624
  Transmission Date: 20200713
  Serious: Yes (Hospitalization, Other)
  Sender: FDA-Public Use
  Company Number: BE-INCYTE CORPORATION-2019IN002383

PATIENT

DRUGS (10)
  1. JAKAVI [Suspect]
     Active Substance: RUXOLITINIB
     Dosage: UNK
     Route: 065
     Dates: start: 20190927
  2. CLINDAMYCINE [CLINDAMYCIN PHOSPHATE] [Concomitant]
     Indication: STAPHYLOCOCCAL INFECTION
     Dosage: 600 OT
     Route: 065
     Dates: start: 20181022, end: 20181031
  3. LORMETAZEPAM [Concomitant]
     Active Substance: LORMETAZEPAM
     Indication: INSOMNIA
     Dosage: 2 OT
     Route: 065
     Dates: start: 20081223, end: 20190617
  4. CARDIOASPIRINE [Concomitant]
     Active Substance: ASPIRIN
     Indication: THROMBOSIS PROPHYLAXIS
     Dosage: 100 OT
     Route: 065
     Dates: start: 20090804, end: 20190227
  5. JAKAVI [Suspect]
     Active Substance: RUXOLITINIB
     Dosage: 5 OT
     Route: 048
     Dates: start: 20190802, end: 20190926
  6. JAKAVI [Suspect]
     Active Substance: RUXOLITINIB
     Indication: POLYCYTHAEMIA VERA
     Dosage: 20 MG, BID
     Route: 048
     Dates: start: 20181121, end: 20190531
  7. HYDREA [Concomitant]
     Active Substance: HYDROXYUREA
     Indication: POLYCYTHAEMIA VERA
     Dosage: 500 DF, UNK
     Route: 065
     Dates: start: 200905, end: 20181121
  8. JAKAVI [Suspect]
     Active Substance: RUXOLITINIB
     Dosage: 10 MG, BID
     Route: 048
     Dates: start: 20190601, end: 20190801
  9. METVIX [Concomitant]
     Active Substance: METHYL AMINOLEVULINATE HYDROCHLORIDE
     Indication: PHOTODYNAMIC THERAPY
     Dosage: 5 OT
     Route: 065
     Dates: start: 20181205, end: 20181205
  10. COSAAR PLUS [Concomitant]
     Active Substance: HYDROCHLOROTHIAZIDE\LOSARTAN
     Indication: HYPERTENSION
     Dosage: UNK
     Route: 065
     Dates: start: 20090520, end: 20190425

REACTIONS (43)
  - Back pain [Recovered/Resolved]
  - Headache [Recovered/Resolved]
  - Dysphonia [Not Recovered/Not Resolved]
  - Nausea [Recovered/Resolved]
  - Plasmacytoma [Unknown]
  - Sinus tachycardia [Recovered/Resolved]
  - Cancer pain [Recovered/Resolved]
  - Diabetic foot [Recovered/Resolved]
  - Back pain [Recovered/Resolved]
  - Orthopnoea [Recovered/Resolved]
  - Oedema [Recovered/Resolved]
  - Epistaxis [Recovered/Resolved]
  - Metastases to bone [Recovered/Resolved]
  - Paraesthesia [Recovered/Resolved]
  - Platelet count decreased [Not Recovered/Not Resolved]
  - Rash pustular [Recovered/Resolved]
  - Renal cyst [Not Recovered/Not Resolved]
  - Dysphagia [Recovered/Resolved]
  - Pyrexia [Recovered/Resolved]
  - Anaemia [Not Recovered/Not Resolved]
  - Vertebral foraminal stenosis [Unknown]
  - Second primary malignancy [Unknown]
  - Tremor [Recovered/Resolved]
  - Acute kidney injury [Recovered/Resolved]
  - Anxiety [Recovered/Resolved]
  - Cancer pain [Recovered/Resolved]
  - Cancer pain [Recovered/Resolved]
  - Diarrhoea [Recovered/Resolved]
  - Oedema peripheral [Recovered/Resolved]
  - Plasma cell myeloma [Recovered/Resolved]
  - Vomiting [Recovered/Resolved]
  - Atrial fibrillation [Not Recovered/Not Resolved]
  - Cancer pain [Recovered/Resolved]
  - Cancer pain [Recovered/Resolved]
  - Constipation [Recovered/Resolved]
  - Diabetic foot [Recovered/Resolved]
  - Oedema peripheral [Not Recovered/Not Resolved]
  - Metastases to bone [Not Recovered/Not Resolved]
  - Cancer pain [Not Recovered/Not Resolved]
  - Back pain [Recovered/Resolved]
  - Dyspnoea [Recovered/Resolved]
  - Facet joint syndrome [Not Recovered/Not Resolved]
  - Back pain [Recovered/Resolved]

NARRATIVE: CASE EVENT DATE: 201812
